FAERS Safety Report 24021241 (Version 1)
Quarter: 2024Q2

REPORT INFORMATION
  Report Type: Report from Study
  Country: US (occurrence: US)
  Receive Date: 20240627
  Receipt Date: 20240627
  Transmission Date: 20240715
  Serious: Yes (Hospitalization)
  Sender: FDA-Public Use
  Company Number: US-ZENPEP LLC-2024AIMT00972

PATIENT

DRUGS (2)
  1. ZENPEP [Suspect]
     Active Substance: PANCRELIPASE AMYLASE\PANCRELIPASE LIPASE\PANCRELIPASE PROTEASE
     Indication: Pancreatic failure
     Dosage: 40 000 UPS 100CT CAPSULES
     Route: 065
  2. ZENPEP [Suspect]
     Active Substance: PANCRELIPASE AMYLASE\PANCRELIPASE LIPASE\PANCRELIPASE PROTEASE
     Dosage: 40 000 UPS 100CT CAPSULES, ONCE, LAST DOSE PRIOR EVENTS
     Route: 065

REACTIONS (4)
  - Hospitalisation [Unknown]
  - Therapy cessation [Unknown]
  - Emotional distress [Unknown]
  - Diarrhoea [Unknown]
